FAERS Safety Report 8789275 (Version 1)
Quarter: 2012Q4

REPORT INFORMATION
  Report Type: Spontaneous
  Country: US (occurrence: None)
  Receive Date: 20120910
  Receipt Date: 20120910
  Transmission Date: 20130627
  Serious: No
  Sender: FDA-Public Use
  Company Number: None

PATIENT
  Age: 61 Year
  Sex: Female
  Weight: 51.71 kg

DRUGS (1)
  1. PROMETRIUM [Suspect]
     Dosage: 1 pill daily po
     Route: 048
     Dates: start: 20120101, end: 20120727

REACTIONS (2)
  - Dizziness [None]
  - Vertigo [None]
